FAERS Safety Report 12972472 (Version 1)
Quarter: 2016Q4

REPORT INFORMATION
  Report Type: Report from Study
  Country: KR (occurrence: KR)
  Receive Date: 20161124
  Receipt Date: 20161124
  Transmission Date: 20170207
  Serious: No
  Sender: FDA-Public Use
  Company Number: KR-PROSTRAKAN-2016-KR-0216

PATIENT

DRUGS (18)
  1. GRANISETRON [Suspect]
     Active Substance: GRANISETRON
     Indication: PROPHYLAXIS OF NAUSEA AND VOMITING
     Dosage: UNKNOWN
     Route: 062
     Dates: start: 20111020, end: 20111027
  2. MULTIMIN [Concomitant]
     Indication: NUTRITIONAL SUPPLEMENTATION
     Dosage: UNKNOWN
     Route: 065
     Dates: start: 20111021, end: 20111021
  3. ETOPOSID [Concomitant]
     Active Substance: ETOPOSIDE
     Indication: PRODUCT USED FOR UNKNOWN INDICATION
     Dosage: UNKNOWN
     Route: 065
     Dates: start: 20110909, end: 20110911
  4. KASHUT SUSPENSION [Concomitant]
     Indication: HYPERKALAEMIA
     Dosage: UNKNOWN
     Route: 065
     Dates: start: 20110908, end: 20110908
  5. MUCOMYST [Concomitant]
     Active Substance: ACETYLCYSTEINE
     Indication: PRODUCTIVE COUGH
     Dosage: UNKNOWN
     Route: 065
     Dates: start: 20110929, end: 20111002
  6. MECKOOL INJ [Concomitant]
     Dosage: UNKNOWN
     Route: 065
     Dates: start: 20110910, end: 20110911
  7. SOLONDO [Concomitant]
     Active Substance: PREDNISOLONE
     Indication: METASTASES TO CENTRAL NERVOUS SYSTEM
     Dosage: UNKNOWN
     Route: 065
     Dates: start: 20110902, end: 20110916
  8. GLIATILIN [Concomitant]
     Active Substance: CHOLINE ALFOSCERATE
     Indication: METASTASES TO CENTRAL NERVOUS SYSTEM
     Dosage: UNKNOWN
     Route: 065
     Dates: start: 20110901, end: 20110916
  9. EMEND [Concomitant]
     Active Substance: APREPITANT
     Indication: PRODUCT USED FOR UNKNOWN INDICATION
     Dosage: UNKNOWN
     Route: 065
     Dates: start: 20110909, end: 20110909
  10. LASIX [Concomitant]
     Active Substance: FUROSEMIDE
     Indication: PROPHYLAXIS
     Dosage: UNKNOWN
     Route: 065
     Dates: start: 20110909, end: 20110911
  11. AVENTRO [Concomitant]
     Indication: DYSPNOEA
     Dosage: UNKNOWN
     Route: 065
     Dates: start: 20110929, end: 20111002
  12. PLATOSIN [Concomitant]
     Active Substance: CISPLATIN
     Indication: PRODUCT USED FOR UNKNOWN INDICATION
     Dosage: UNKNOWN
     Route: 065
     Dates: start: 20110909, end: 20110909
  13. DEXAMETHASONE. [Concomitant]
     Active Substance: DEXAMETHASONE
     Indication: PROPHYLAXIS
     Dosage: UNKNOWN
     Route: 065
     Dates: start: 20110909, end: 20110909
  14. ULCERLMIN [Concomitant]
     Active Substance: SUCRALFATE
     Indication: GASTRITIS PROPHYLAXIS
     Dosage: UNKNOWN
     Route: 065
     Dates: start: 20110929, end: 20111019
  15. ASPIRIN. [Concomitant]
     Active Substance: ASPIRIN
     Indication: CEREBELLAR INFARCTION
     Dosage: UNKNOWN
     Route: 065
     Dates: start: 20111020
  16. APETROL [Concomitant]
     Indication: DECREASED APPETITE
     Dosage: UNKNOWN
     Route: 065
     Dates: start: 20111011, end: 20111019
  17. DEPAKINE CHRONO [Concomitant]
     Active Substance: VALPROATE SODIUM
     Indication: METASTASES TO CENTRAL NERVOUS SYSTEM
     Dosage: UNKNOWN
     Route: 065
     Dates: start: 20110901, end: 20110916
  18. TYLENOL ER [Concomitant]
     Active Substance: ACETAMINOPHEN
     Indication: HEADACHE
     Dosage: UNKNOWN
     Route: 065
     Dates: start: 20110901, end: 20110916

REACTIONS (8)
  - Cerebellar infarction [Not Recovered/Not Resolved]
  - Productive cough [Recovered/Resolved]
  - Nausea [Recovered/Resolved]
  - Headache [Recovered/Resolved]
  - Fatigue [Not Recovered/Not Resolved]
  - Decreased appetite [Recovering/Resolving]
  - Dizziness [Recovered/Resolved]
  - Dyspnoea [Recovered/Resolved]

NARRATIVE: CASE EVENT DATE: 20111018
